FAERS Safety Report 6914408-3 (Version None)
Quarter: 2010Q3

REPORT INFORMATION
  Report Type: 
  Country: None (occurrence: None)
  Receive Date: 20100805
  Receipt Date: 20100805
  Transmission Date: 20110219
  Serious: Yes (Death, Hospitalization)
  Sender: FDA-Public Use
  Company Number: None

PATIENT
  Sex: Male
  Weight: 110 kg

DRUGS (3)
  1. DAUNORUBICIN HCL [Suspect]
     Dosage: 408 MG
     Dates: end: 20100627
  2. ETOPOSIDE [Suspect]
     Dosage: 454 MG
     Dates: end: 20100627
  3. CYTARABINE [Suspect]
     Dosage: 1135 MG
     Dates: end: 20100630

REACTIONS (16)
  - ANAEMIA [None]
  - BUNDLE BRANCH BLOCK RIGHT [None]
  - CONVULSION [None]
  - DIALYSIS [None]
  - HEART RATE DECREASED [None]
  - HEPATITIS [None]
  - HEPATOMEGALY [None]
  - HYPOTENSION [None]
  - MYOCARDIAL ISCHAEMIA [None]
  - NEUTROPENIA [None]
  - PNEUMONIA [None]
  - RENAL FAILURE ACUTE [None]
  - RHABDOMYOLYSIS [None]
  - SEPSIS [None]
  - STENOTROPHOMONAS TEST POSITIVE [None]
  - TACHYCARDIA [None]
